FAERS Safety Report 6429805-2 (Version None)
Quarter: 2009Q4

REPORT INFORMATION
  Report Type: 
  Country: None (occurrence: None)
  Receive Date: 20091106
  Receipt Date: 20091030
  Transmission Date: 20100525
  Serious: Yes (Hospitalization)
  Sender: FDA-Public Use
  Company Number: PHHO2009DE13426

PATIENT
  Sex: Female
  Weight: 16.8 kg

DRUGS (1)
  1. ELIDEL [Suspect]
     Indication: DERMATITIS ATOPIC
     Dosage: APPLED TWICE DAILY
     Route: 061
     Dates: start: 20041112

REACTIONS (1)
  - GASTROENTERITIS SALMONELLA [None]
